FAERS Safety Report 6600433-9 (Version None)
Quarter: 2010Q1

REPORT INFORMATION
  Report Type: 
  Country: None (occurrence: None)
  Receive Date: 20100224
  Receipt Date: 20100218
  Transmission Date: 20100710
  Serious: Yes (Hospitalization)
  Sender: FDA-Public Use
  Company Number: US-GILEAD-2010-0027175

PATIENT
  Sex: Female
  Weight: 65.83 kg

DRUGS (9)
  1. LETAIRIS [Suspect]
     Indication: PULMONARY ARTERIAL HYPERTENSION
     Route: 048
     Dates: start: 20100208, end: 20100215
  2. WARFARIN SODIUM [Concomitant]
  3. LASIX [Concomitant]
  4. SPIRONOLACTONE [Concomitant]
  5. VERAPAMIL [Concomitant]
  6. DIGOXIN [Concomitant]
  7. VITAMIN C [Concomitant]
  8. MINERAL TAB [Concomitant]
  9. MULTI-VITAMIN [Concomitant]

REACTIONS (2)
  - HYPOTENSION [None]
  - OEDEMA [None]
